FAERS Safety Report 17591528 (Version 1)
Quarter: 2020Q1

REPORT INFORMATION
  Report Type: Spontaneous
  Country: IT (occurrence: IT)
  Receive Date: 20200327
  Receipt Date: 20200327
  Transmission Date: 20200409
  Serious: Yes (Other)
  Sender: FDA-Public Use
  Company Number: IT-TEVA-2020-IT-1213778

PATIENT
  Age: 7 Decade
  Sex: Female

DRUGS (16)
  1. ETOPOSIDE. [Suspect]
     Active Substance: ETOPOSIDE
     Indication: NEUROENDOCRINE BREAST TUMOUR
     Route: 065
     Dates: start: 201011, end: 201103
  2. CISPLATIN. [Suspect]
     Active Substance: CISPLATIN
     Indication: NEUROENDOCRINE BREAST TUMOUR
     Route: 065
     Dates: start: 201011, end: 201103
  3. ETOPOSIDE. [Suspect]
     Active Substance: ETOPOSIDE
     Indication: NEUROENDOCRINE CARCINOMA METASTATIC
  4. DOXORUBICIN [Suspect]
     Active Substance: DOXORUBICIN
     Indication: NEUROENDOCRINE BREAST TUMOUR
     Dosage: EIGHT CYCLES
     Route: 065
     Dates: start: 201306, end: 201311
  5. CYCLOPHOSPHAMIDE. [Suspect]
     Active Substance: CYCLOPHOSPHAMIDE
     Indication: NEUROENDOCRINE BREAST TUMOUR
     Dosage: EIGHT CYCLES
     Route: 065
     Dates: start: 201306, end: 201311
  6. CYCLOPHOSPHAMIDE. [Suspect]
     Active Substance: CYCLOPHOSPHAMIDE
     Indication: NEUROENDOCRINE CARCINOMA METASTATIC
  7. CISPLATIN. [Suspect]
     Active Substance: CISPLATIN
     Indication: NEUROENDOCRINE CARCINOMA METASTATIC
  8. VINCRISTINE [Suspect]
     Active Substance: VINCRISTINE
     Indication: NEUROENDOCRINE CARCINOMA METASTATIC
  9. TEMOZOLOMIDE. [Suspect]
     Active Substance: TEMOZOLOMIDE
     Indication: NEUROENDOCRINE CARCINOMA METASTATIC
  10. ZOLEDRONIC ACID [Concomitant]
     Active Substance: ZOLEDRONIC ACID
     Indication: NEUROENDOCRINE CARCINOMA METASTATIC
  11. DOXORUBICIN [Suspect]
     Active Substance: DOXORUBICIN
     Indication: NEUROENDOCRINE CARCINOMA METASTATIC
  12. CAPECITABINE. [Suspect]
     Active Substance: CAPECITABINE
     Indication: NEUROENDOCRINE CARCINOMA METASTATIC
  13. ZOLEDRONIC ACID [Concomitant]
     Active Substance: ZOLEDRONIC ACID
     Indication: NEUROENDOCRINE BREAST TUMOUR
     Route: 065
     Dates: start: 201107, end: 201305
  14. VINCRISTINE [Suspect]
     Active Substance: VINCRISTINE
     Indication: NEUROENDOCRINE BREAST TUMOUR
     Dosage: EIGHT CYCLES
     Route: 065
     Dates: start: 201306, end: 201311
  15. TEMOZOLOMIDE. [Suspect]
     Active Substance: TEMOZOLOMIDE
     Indication: NEUROENDOCRINE BREAST TUMOUR
     Dosage: DAYS 10-14; EVERY 28 DAYS
     Route: 048
     Dates: start: 201504
  16. CAPECITABINE. [Suspect]
     Active Substance: CAPECITABINE
     Indication: NEUROENDOCRINE BREAST TUMOUR
     Dosage: DAYS 1-14; EVERY 28 DAYS
     Route: 048
     Dates: start: 201504

REACTIONS (4)
  - Thrombocytopenia [Unknown]
  - Haematotoxicity [Unknown]
  - Neurotoxicity [Unknown]
  - Fatigue [Unknown]
